FAERS Safety Report 13613872 (Version 1)
Quarter: 2017Q2

REPORT INFORMATION
  Report Type: Report from Study
  Country: DE (occurrence: DE)
  Receive Date: 20170606
  Receipt Date: 20170606
  Transmission Date: 20170830
  Serious: Yes (Hospitalization)
  Sender: FDA-Public Use
  Company Number: DE-BAXTER-2017BAX022549

PATIENT
  Age: 54 Year
  Sex: Male
  Weight: 60 kg

DRUGS (4)
  1. OLIMEL E [Suspect]
     Active Substance: AMINO ACIDS\DEXTROSE\ELECTROLYTES NOS\SOYBEAN OIL
     Indication: PARENTERAL NUTRITION
     Route: 042
     Dates: start: 20170510, end: 20170528
  2. ADDEL TRACE [Suspect]
     Active Substance: CHROMIC CATION\CUPRIC CATION\FERROUS CATION\FLUORIDE ION\IODIDE ION\MANGANESE CATION (2+)\SODIUM SELENIDE\ZINC CATION
     Indication: PARENTERAL NUTRITION
     Route: 042
     Dates: start: 20170510, end: 20170528
  3. ISOTONISCHE KOCHSALZL?SUNG BAXTER 9 MG/ML (0,9 %) INFUSIONSL?SUNG [Suspect]
     Active Substance: SODIUM CHLORIDE
     Indication: MEDICATION DILUTION
     Route: 042
     Dates: start: 20170510, end: 20170528
  4. CERNEVIT [Suspect]
     Active Substance: VITAMINS
     Indication: PARENTERAL NUTRITION
     Route: 042
     Dates: start: 20170510, end: 20170528

REACTIONS (1)
  - Nausea [Unknown]

NARRATIVE: CASE EVENT DATE: 20170528
